FAERS Safety Report 22201397 (Version 1)
Quarter: 2023Q2

REPORT INFORMATION
  Report Type: Spontaneous
  Country: JP (occurrence: JP)
  Receive Date: 20230412
  Receipt Date: 20230412
  Transmission Date: 20230722
  Serious: Yes (Other)
  Sender: FDA-Public Use
  Company Number: JP-GSKNCCC-Case-01707079_AE-69476

PATIENT

DRUGS (1)
  1. INCRUSE ELLIPTA [Suspect]
     Active Substance: UMECLIDINIUM BROMIDE
     Indication: Cough
     Dosage: UNK
     Dates: start: 2022

REACTIONS (10)
  - Lung neoplasm malignant [Unknown]
  - Arrhythmia [Unknown]
  - Oedema peripheral [Unknown]
  - Gait disturbance [Unknown]
  - Dysuria [Unknown]
  - Chromaturia [Unknown]
  - Bladder pain [Unknown]
  - Constipation [Unknown]
  - Thirst [Unknown]
  - Musculoskeletal stiffness [Unknown]

NARRATIVE: CASE EVENT DATE: 20230406
